FAERS Safety Report 22531862 (Version 1)
Quarter: 2023Q2

REPORT INFORMATION
  Report Type: Spontaneous
  Country: US (occurrence: None)
  Receive Date: 20230606
  Receipt Date: 20230606
  Transmission Date: 20230722
  Serious: Yes (Other)
  Sender: FDA-Public Use
  Company Number: None

PATIENT
  Sex: Male

DRUGS (1)
  1. DROXIDOPA [Suspect]
     Active Substance: DROXIDOPA
     Indication: Orthostatic hypotension
     Dosage: 100 MG ORAL?TAKE 1 CAPSULE BY MOUTH THREE TIMES DAILY
     Route: 048
     Dates: start: 20210316

REACTIONS (1)
  - Prostate cancer [None]
